FAERS Safety Report 9581032 (Version 3)
Quarter: 2013Q4

REPORT INFORMATION
  Report Type: Report from Study
  Country: US (occurrence: US)
  Receive Date: 20131002
  Receipt Date: 20131107
  Transmission Date: 20140711
  Serious: Yes (Other)
  Sender: FDA-Public Use
  Company Number: US-ROCHE-1171610

PATIENT
  Age: 53 Year
  Sex: Male

DRUGS (8)
  1. PEGASYS [Suspect]
     Indication: CHRONIC HEPATITIS C
     Route: 058
     Dates: start: 20121015, end: 20130916
  2. COPEGUS [Suspect]
     Indication: CHRONIC HEPATITIS C
     Route: 048
     Dates: start: 20121015
  3. COPEGUS [Suspect]
     Route: 065
     Dates: start: 20121107
  4. COPEGUS [Suspect]
     Route: 048
     Dates: start: 201303
  5. COPEGUS [Suspect]
     Dosage: DOSE REDUCED
     Route: 048
     Dates: start: 20130626, end: 20130916
  6. TELAPREVIR [Suspect]
     Indication: CHRONIC HEPATITIS C
     Route: 065
     Dates: start: 20121015, end: 20130108
  7. LISINOPRIL [Concomitant]
     Indication: HYPERTENSION
     Route: 065
  8. ATENOLOL [Concomitant]
     Indication: HYPERTENSION
     Route: 065

REACTIONS (20)
  - Anaemia [Recovering/Resolving]
  - Thirst [Unknown]
  - Dry skin [Unknown]
  - Fatigue [Recovering/Resolving]
  - Haemoglobin decreased [Unknown]
  - Weight increased [Unknown]
  - Blood glucose increased [Unknown]
  - Fall [Unknown]
  - Shoulder deformity [Unknown]
  - Energy increased [Unknown]
  - Blood pressure decreased [Unknown]
  - Restlessness [Unknown]
  - Muscle spasms [Unknown]
  - Muscle fatigue [Unknown]
  - Feeling abnormal [Unknown]
  - Chromaturia [Unknown]
  - Blood urine present [Unknown]
  - Nephrolithiasis [Unknown]
  - Pain [Unknown]
  - Dehydration [Unknown]
